FAERS Safety Report 7771228-8 (Version None)
Quarter: 2011Q3

REPORT INFORMATION
  Report Type: 
  Country: None (occurrence: None)
  Receive Date: 20110922
  Receipt Date: 20110608
  Transmission Date: 20111222
  Serious: No
  Sender: FDA-Public Use
  Company Number: US-ASTRAZENECA-2011SE35185

PATIENT
  Age: 66 Year
  Sex: Male
  Weight: 89.8 kg

DRUGS (2)
  1. PRAMIPEXOLES [Concomitant]
     Indication: PARKINSON'S DISEASE
  2. SEROQUEL [Suspect]
     Indication: SLEEP DISORDER
     Route: 048
     Dates: start: 20060101

REACTIONS (4)
  - INSOMNIA [None]
  - DRUG DOSE OMISSION [None]
  - PARKINSON'S DISEASE [None]
  - OFF LABEL USE [None]
